FAERS Safety Report 6791294-6 (Version None)
Quarter: 2010Q2

REPORT INFORMATION
  Report Type: 
  Country: None (occurrence: None)
  Receive Date: 20100624
  Receipt Date: 20100614
  Transmission Date: 20101027
  Serious: Yes (Hospitalization, Disabling, Other)
  Sender: FDA-Public Use
  Company Number: JP-BAXTER-2009BH019966

PATIENT
  Age: 15 Year
  Sex: Female

DRUGS (12)
  1. HOLOXAN BAXTER [Suspect]
     Indication: RHABDOMYOSARCOMA
     Route: 041
     Dates: start: 20091109, end: 20091113
  2. LASTET [Suspect]
     Indication: RHABDOMYOSARCOMA
     Route: 042
     Dates: start: 20091109, end: 20091113
  3. VINCRISTINE SULFATE [Suspect]
     Indication: RHABDOMYOSARCOMA
     Route: 042
     Dates: start: 20091109, end: 20091109
  4. VINCRISTINE SULFATE [Suspect]
     Route: 042
     Dates: start: 20091116, end: 20091116
  5. COSMEGEN [Suspect]
     Indication: RHABDOMYOSARCOMA
     Route: 041
     Dates: start: 20091109, end: 20091113
  6. MIDAZOLAM HYDROCHLORIDE [Suspect]
     Indication: NAUSEA
     Route: 041
     Dates: start: 20091109, end: 20091119
  7. MIDAZOLAM HYDROCHLORIDE [Suspect]
     Route: 041
     Dates: start: 20091120, end: 20091130
  8. BROACT [Suspect]
     Indication: PYREXIA
     Route: 041
     Dates: start: 20091114, end: 20091119
  9. FUNGUARD [Suspect]
     Indication: PYREXIA
     Route: 041
     Dates: start: 20091114, end: 20091130
  10. RAMELTEON [Concomitant]
     Indication: DRUG USE FOR UNKNOWN INDICATION
     Route: 042
     Dates: start: 20091109, end: 20091113
  11. UROMITEXAN BAXTER [Concomitant]
     Indication: DRUG USE FOR UNKNOWN INDICATION
     Route: 042
     Dates: start: 20091109, end: 20091113
  12. VEEN 3G [Concomitant]
     Indication: DRUG USE FOR UNKNOWN INDICATION
     Route: 041
     Dates: start: 20091108, end: 20091113

REACTIONS (8)
  - ALTERED STATE OF CONSCIOUSNESS [None]
  - BACTERIAL INFECTION [None]
  - BONE MARROW FAILURE [None]
  - DISSEMINATED INTRAVASCULAR COAGULATION [None]
  - PYREXIA [None]
  - RESPIRATORY FAILURE [None]
  - RHABDOMYOLYSIS [None]
  - URINE OUTPUT DECREASED [None]
